FAERS Safety Report 14487991 (Version 2)
Quarter: 2018Q1

REPORT INFORMATION
  Report Type: Spontaneous
  Country: PL (occurrence: PL)
  Receive Date: 20180205
  Receipt Date: 20180302
  Transmission Date: 20180509
  Serious: Yes (Death, Other)
  Sender: FDA-Public Use
  Company Number: PHHY2018PL016124

PATIENT
  Age: 17 Year
  Sex: Male

DRUGS (1)
  1. RYDAPT [Suspect]
     Active Substance: MIDOSTAURIN
     Indication: ACUTE MYELOID LEUKAEMIA
     Dosage: 50 MG, BID
     Route: 048
     Dates: start: 20180117

REACTIONS (25)
  - General physical health deterioration [Fatal]
  - Cardiopulmonary failure [Fatal]
  - Cardiac arrest [Fatal]
  - Pseudomonal sepsis [Fatal]
  - Cough [Fatal]
  - Asthenia [Fatal]
  - Thrombocytopenia [Fatal]
  - Fatigue [Fatal]
  - Agranulocytosis [Fatal]
  - Headache [Fatal]
  - Decreased appetite [Fatal]
  - Weight decreased [Fatal]
  - Chest pain [Unknown]
  - Blood pressure decreased [Fatal]
  - Pancytopenia [Fatal]
  - Anuria [Fatal]
  - Anaemia [Fatal]
  - Pulmonary mycosis [Fatal]
  - Dyspnoea [Fatal]
  - Septic shock [Fatal]
  - Acute myeloid leukaemia [Fatal]
  - Pyrexia [Fatal]
  - Chills [Fatal]
  - Leukopenia [Fatal]
  - Pulmonary oedema [Unknown]

NARRATIVE: CASE EVENT DATE: 20180118
